FAERS Safety Report 11275975 (Version 1)
Quarter: 2015Q3

REPORT INFORMATION
  Report Type: Other
  Country: ES (occurrence: ES)
  Receive Date: 20150716
  Receipt Date: 20150716
  Transmission Date: 20151125
  Serious: Yes (Death, Hospitalization)
  Sender: FDA-Public Use
  Company Number: ES-LUPIN PHARMACEUTICALS INC.-2015-02094

PATIENT
  Age: 53 Year
  Sex: Male

DRUGS (4)
  1. NITRAZEPAM [Suspect]
     Active Substance: NITRAZEPAM
     Dosage: OVERDOSE
     Route: 065
  2. QUETIAPINE [Suspect]
     Active Substance: QUETIAPINE
     Indication: POST-TRAUMATIC STRESS DISORDER
     Route: 065
  3. QUETIAPINE [Suspect]
     Active Substance: QUETIAPINE
     Dosage: OVERDOSE
     Route: 065
  4. NITRAZEPAM [Suspect]
     Active Substance: NITRAZEPAM
     Indication: POST-TRAUMATIC STRESS DISORDER
     Route: 065

REACTIONS (4)
  - Completed suicide [Fatal]
  - Overdose [Fatal]
  - Potentiating drug interaction [Fatal]
  - Drug-induced liver injury [Fatal]
